FAERS Safety Report 25150119 (Version 1)
Quarter: 2025Q2

REPORT INFORMATION
  Report Type: Spontaneous
  Country: US (occurrence: None)
  Receive Date: 20250401
  Receipt Date: 20250401
  Transmission Date: 20250717
  Serious: Yes (Other)
  Sender: FDA-CTU
  Company Number: None

PATIENT
  Age: 70 Year
  Sex: Female

DRUGS (1)
  1. BOTOX [Suspect]
     Active Substance: ONABOTULINUMTOXINA

REACTIONS (6)
  - Periorbital swelling [None]
  - Eye irritation [None]
  - Skin tightness [None]
  - Wrong technique in product usage process [None]
  - Legal problem [None]
  - Victim of abuse [None]

NARRATIVE: CASE EVENT DATE: 20250313
